FAERS Safety Report 7783291-9 (Version None)
Quarter: 2011Q3

REPORT INFORMATION
  Report Type: 
  Country: None (occurrence: None)
  Receive Date: 20110928
  Receipt Date: 20110919
  Transmission Date: 20111222
  Serious: Yes (Hospitalization, Other)
  Sender: FDA-Public Use
  Company Number: US-JNJFOC-20110908334

PATIENT
  Sex: Female
  Weight: 78.47 kg

DRUGS (13)
  1. DURAGESIC-100 [Suspect]
     Route: 062
  2. MORPHINE [Suspect]
     Indication: PRODUCT USED FOR UNKNOWN INDICATION
     Route: 065
  3. DURAGESIC-100 [Suspect]
     Indication: SCOLIOSIS
     Route: 062
  4. DURAGESIC-100 [Suspect]
     Route: 062
  5. DURAGESIC-100 [Suspect]
     Route: 062
  6. DURAGESIC-100 [Suspect]
     Indication: PAIN
     Route: 062
  7. DURAGESIC-100 [Suspect]
     Route: 062
  8. DURAGESIC-100 [Suspect]
     Route: 062
  9. TRAMADOL [Concomitant]
     Indication: FIBROMYALGIA
     Route: 048
     Dates: start: 20050101
  10. DURAGESIC-100 [Suspect]
     Indication: INTERVERTEBRAL DISC DEGENERATION
     Route: 062
  11. DURAGESIC-100 [Suspect]
     Indication: OSTEOARTHRITIS
     Route: 062
  12. DURAGESIC-100 [Suspect]
     Indication: FIBROMYALGIA
     Route: 062
  13. SERTRALINE HYDROCHLORIDE [Concomitant]
     Indication: DEPRESSION
     Route: 048
     Dates: start: 20110101

REACTIONS (9)
  - LOSS OF CONSCIOUSNESS [None]
  - CARPAL TUNNEL SYNDROME [None]
  - OVERDOSE [None]
  - PRODUCT ADHESION ISSUE [None]
  - SPEECH DISORDER [None]
  - CHRONIC OBSTRUCTIVE PULMONARY DISEASE [None]
  - MENTAL DISORDER [None]
  - PARKINSON'S DISEASE [None]
  - WRONG TECHNIQUE IN DRUG USAGE PROCESS [None]
